FAERS Safety Report 21356607 (Version 2)
Quarter: 2022Q3

REPORT INFORMATION
  Report Type: Spontaneous
  Country: FR (occurrence: FR)
  Receive Date: 20220920
  Receipt Date: 20220926
  Transmission Date: 20221027
  Serious: Yes (Life-Threatening, Hospitalization, Other)
  Sender: FDA-Public Use
  Company Number: FR-AMGEN-FRASP2022155170

PATIENT
  Age: 73 Year
  Sex: Male

DRUGS (3)
  1. DEXAMETHASONE [Suspect]
     Active Substance: DEXAMETHASONE
     Indication: Plasma cell myeloma
     Dosage: UNK
     Route: 065
  2. CARFILZOMIB [Suspect]
     Active Substance: CARFILZOMIB
     Indication: Plasma cell myeloma
     Dosage: UNK
     Route: 065
  3. PAXLOVID [Suspect]
     Active Substance: NIRMATRELVIR\RITONAVIR
     Indication: COVID-19
     Dosage: UNK
     Route: 065

REACTIONS (7)
  - Haemolytic uraemic syndrome [Recovering/Resolving]
  - COVID-19 [Unknown]
  - Drug interaction [Unknown]
  - Toxicity to various agents [Unknown]
  - Overdose [Unknown]
  - Renal failure [Recovering/Resolving]
  - Thrombotic microangiopathy [Recovered/Resolved]
